FAERS Safety Report 25914488 (Version 1)
Quarter: 2025Q4

REPORT INFORMATION
  Report Type: Spontaneous
  Country: TW (occurrence: TW)
  Receive Date: 20251013
  Receipt Date: 20251013
  Transmission Date: 20260118
  Serious: Yes (Hospitalization)
  Sender: FERRING
  Company Number: TW-FERRINGPH-2025FE05970

PATIENT

DRUGS (18)
  1. DESMOPRESSIN ACETATE [Suspect]
     Active Substance: DESMOPRESSIN ACETATE
     Indication: Nocturia
     Dosage: 60 UG, DAY
     Route: 048
     Dates: start: 20250826, end: 20250904
  2. DESMOPRESSIN ACETATE [Suspect]
     Active Substance: DESMOPRESSIN ACETATE
     Indication: Diabetes insipidus
  3. NAPROXEN [Concomitant]
     Active Substance: NAPROXEN
     Indication: Product used for unknown indication
     Dosage: 250 MG, 0.33 DAY
     Route: 048
     Dates: start: 20250820, end: 20250827
  4. MAGNESIUM [Concomitant]
     Active Substance: MAGNESIUM
     Indication: Product used for unknown indication
     Dosage: 250 MG, 0.33 DAY
     Route: 048
     Dates: start: 20250820, end: 20250902
  5. MEPHENOXALONE [Concomitant]
     Active Substance: MEPHENOXALONE
     Indication: Product used for unknown indication
     Dosage: 200 MG, 0.33 DAY
     Route: 048
     Dates: start: 20250823, end: 20250902
  6. Romicon a [Concomitant]
     Indication: Product used for unknown indication
     Dosage: 20 MG, 0.33 DAY
     Route: 048
     Dates: start: 20250812, end: 20250902
  7. Cabidrin [Concomitant]
     Indication: Product used for unknown indication
     Dosage: 1 TABLET, 0.5 DAY
     Route: 048
     Dates: start: 20250522
  8. Lowen [Concomitant]
     Indication: Product used for unknown indication
     Dosage: 0.5 MG, 1 DAY
     Route: 048
     Dates: start: 20250825, end: 20250901
  9. CEPHALEXIN [Concomitant]
     Active Substance: CEPHALEXIN
     Indication: Product used for unknown indication
     Dosage: 500 MG, 0.33 DAY
     Route: 048
     Dates: start: 20250826
  10. HYDREA [Concomitant]
     Active Substance: HYDROXYUREA
     Indication: Product used for unknown indication
     Dosage: 750 MG, 1 DAY
     Route: 048
     Dates: start: 20220217
  11. Espin e.m. [Concomitant]
     Indication: Product used for unknown indication
     Dosage: 100 MG, 1 DAY
     Route: 048
     Dates: start: 20210603
  12. DILTIAZEM HYDROCHLORIDE [Concomitant]
     Active Substance: DILTIAZEM HYDROCHLORIDE
     Indication: Product used for unknown indication
     Dosage: 180 MG, 1 DAY
     Route: 048
     Dates: start: 20210713
  13. Zcough [Concomitant]
     Indication: Product used for unknown indication
     Dosage: 100 MG, 0.33 DAY
     Route: 048
     Dates: start: 20131217
  14. PREDNISOLONE [Concomitant]
     Active Substance: PREDNISOLONE
     Indication: Product used for unknown indication
     Dosage: 5 MG, 1 DAY
     Route: 048
     Dates: start: 20220722
  15. Monkast [Concomitant]
     Indication: Product used for unknown indication
     Dosage: 10 MG, 1 DAY
     Route: 048
     Dates: start: 20150331
  16. OLMESARTAN MEDOXOMIL [Concomitant]
     Active Substance: OLMESARTAN MEDOXOMIL
     Indication: Product used for unknown indication
     Dosage: 40 MG, 1 DAY
     Route: 048
     Dates: start: 20121226
  17. SERETIDE [Concomitant]
     Active Substance: FLUTICASONE PROPIONATE\SALMETEROL XINAFOATE
     Indication: Product used for unknown indication
     Dosage: 2 PF, 0.5 DAY
     Dates: start: 20121106
  18. Acetal [Concomitant]
     Indication: Product used for unknown indication
     Dosage: 500 MG, 0.33 DAY
     Route: 048
     Dates: start: 20250827, end: 20250902

REACTIONS (2)
  - Hyponatraemia [Recovered/Resolved]
  - Urinary tract infection [Recovered/Resolved]

NARRATIVE: CASE EVENT DATE: 20250901
